FAERS Safety Report 6529517-0 (Version None)
Quarter: 2010Q1

REPORT INFORMATION
  Report Type: 
  Country: None (occurrence: None)
  Receive Date: 20100104
  Receipt Date: 20091214
  Transmission Date: 20100710
  Serious: Yes (Life-Threatening, Hospitalization)
  Sender: FDA-Public Use
  Company Number: THYM-1001324

PATIENT
  Age: 60 Year
  Sex: Male
  Weight: 60 kg

DRUGS (10)
  1. THYMOGLOBULIN [Suspect]
     Indication: APLASTIC ANAEMIA
     Dosage: 200 MG, QD, INTRAVENOUS
     Route: 042
     Dates: start: 20090507, end: 20090511
  2. PREDNISOLONE [Concomitant]
  3. FLUCONAZOLE [Concomitant]
  4. SULFAMETOXAZOL MED TRIMETOPRIM (SULFAMETHOXAZOLE, TRIMETHOPRIM) [Concomitant]
  5. MONOAMMONIUM GLYCYRRHIZINATE [Concomitant]
  6. ACYCLOVIR [Concomitant]
  7. CYCLOSPORINE [Concomitant]
  8. CALCIUM POLYSTYRENE SULFONATE (CALCIUM POLYSTYRENE SULFONATE) [Concomitant]
  9. ALLOPURINOL [Concomitant]
  10. RABEPRAZOLE SODIUM [Concomitant]

REACTIONS (5)
  - ASPERGILLOSIS [None]
  - BLOOD BILIRUBIN ABNORMAL [None]
  - BLOOD POTASSIUM ABNORMAL [None]
  - BLOOD POTASSIUM INCREASED [None]
  - HYPERTENSION [None]
